FAERS Safety Report 25792418 (Version 1)
Quarter: 2025Q3

REPORT INFORMATION
  Report Type: Spontaneous
  Country: US (occurrence: None)
  Receive Date: 20250911
  Receipt Date: 20250911
  Transmission Date: 20251021
  Serious: Yes (Hospitalization)
  Sender: FDA-CTU
  Company Number: None

PATIENT
  Sex: Male

DRUGS (5)
  1. VYNDAMAX [Suspect]
     Active Substance: TAFAMIDIS
     Indication: Amyloidosis
     Dosage: FREQUENCY : DAILY;?
     Route: 048
     Dates: start: 20250616
  2. ASPIRIN LOW EC [Concomitant]
  3. JARDIANCE [Concomitant]
     Active Substance: EMPAGLIFLOZIN
  4. VITAMINS [Concomitant]
     Active Substance: VITAMINS
  5. TORSEMIDE [Concomitant]
     Active Substance: TORSEMIDE

REACTIONS (3)
  - Fluid retention [None]
  - Product dose omission issue [None]
  - Transplant evaluation [None]
